FAERS Safety Report 10184733 (Version 5)
Quarter: 2015Q3

REPORT INFORMATION
  Report Type: Report from Study
  Country: JP (occurrence: JP)
  Receive Date: 20140521
  Receipt Date: 20150717
  Transmission Date: 20151125
  Serious: Yes (Hospitalization)
  Sender: FDA-Public Use
  Company Number: JP-ROCHE-1400909

PATIENT
  Age: 58 Year
  Sex: Male
  Weight: 64 kg

DRUGS (28)
  1. METHOXY POLYETHYLENE GLYCOL-EPOETIN BETA [Suspect]
     Active Substance: METHOXY POLYETHYLENE GLYCOL-EPOETIN BETA
     Indication: NEPHROGENIC ANAEMIA
     Dosage: DOSAGE IS UNCERTAIN.
     Route: 042
     Dates: start: 20140513
  2. OXAROL [Concomitant]
     Active Substance: MAXACALCITOL
     Dosage: (MONDAY)
     Route: 042
     Dates: start: 20131216
  3. ARTIST [Concomitant]
     Active Substance: CARVEDILOL
     Dosage: MORNING
     Route: 048
  4. CEFCAPENE PIVOXIL HYDROCHLORIDE [Concomitant]
     Active Substance: CEFCAPENE PIVOXIL HYDROCHLORIDE
     Route: 065
  5. MUCOSTA [Concomitant]
     Active Substance: REBAMIPIDE
     Route: 065
  6. REGPARA [Concomitant]
     Active Substance: CINACALCET HYDROCHLORIDE
     Dosage: MORNING?DRUG REPORTED AS REGPARA
     Route: 048
  7. ALLOID G [Concomitant]
     Active Substance: SODIUM ALGINATE
     Route: 065
  8. LYRICA [Concomitant]
     Active Substance: PREGABALIN
     Route: 065
  9. METHOXY POLYETHYLENE GLYCOL-EPOETIN BETA [Suspect]
     Active Substance: METHOXY POLYETHYLENE GLYCOL-EPOETIN BETA
     Indication: NEPHROGENIC ANAEMIA
     Route: 042
     Dates: start: 20140203
  10. FOSRENOL [Concomitant]
     Active Substance: LANTHANUM CARBONATE
     Route: 048
  11. ARCRANE [Concomitant]
     Route: 065
  12. MONILAC [Concomitant]
     Active Substance: LACTULOSE
     Dosage: SYRUP
     Route: 048
  13. MARZULENE [Concomitant]
     Active Substance: SODIUM GUALENATE
     Route: 048
  14. FOIPAN [Concomitant]
     Active Substance: CAMOSTAT MESYLATE
     Route: 048
  15. POLARAMINE [Concomitant]
     Active Substance: DEXCHLORPHENIRAMINE MALEATE
     Route: 048
  16. FOSRENOL [Concomitant]
     Active Substance: LANTHANUM CARBONATE
     Route: 048
  17. DORNER [Concomitant]
     Active Substance: BERAPROST SODIUM
     Route: 048
  18. BISOLVON [Concomitant]
     Active Substance: BROMHEXINE HYDROCHLORIDE
     Route: 048
  19. WARFARIN [Concomitant]
     Active Substance: WARFARIN
     Dosage: HD DAY: 1.5MG NON-HD DAY: 2MG
     Route: 048
  20. CRAVIT [Concomitant]
     Active Substance: LEVOFLOXACIN
     Route: 065
  21. TAKEPRON [Concomitant]
     Active Substance: LANSOPRAZOLE
     Route: 048
  22. RENIVACE [Concomitant]
     Active Substance: ENALAPRIL
     Dosage: EVENING
     Route: 048
  23. LOXONIN [Concomitant]
     Active Substance: LOXOPROFEN SODIUM
     Route: 065
  24. AMLODIPINE [Concomitant]
     Active Substance: AMLODIPINE BESYLATE
     Dosage: MORNING
     Route: 048
  25. FRANDOL [Concomitant]
     Active Substance: ISOSORBIDE DINITRATE
     Route: 062
  26. METHYCOBAL [Concomitant]
     Active Substance: METHYLCOBALAMIN
     Route: 065
  27. NEXIUM [Concomitant]
     Active Substance: ESOMEPRAZOLE MAGNESIUM
     Dosage: BEFORE IT KNEADS
     Route: 048
  28. LIPACREON [Concomitant]
     Active Substance: PANCRELIPASE
     Route: 048

REACTIONS (6)
  - Device related infection [Recovering/Resolving]
  - Gastric ulcer [Recovering/Resolving]
  - Gastric ulcer haemorrhage [Recovering/Resolving]
  - Haematemesis [Recovering/Resolving]
  - Gastrooesophageal reflux disease [Recovering/Resolving]
  - Intervertebral discitis [Unknown]

NARRATIVE: CASE EVENT DATE: 20140423
